FAERS Safety Report 6059029-2 (Version None)
Quarter: 2009Q1

REPORT INFORMATION
  Report Type: 
  Country: None (occurrence: None)
  Receive Date: 20090130
  Receipt Date: 20090128
  Transmission Date: 20090719
  Serious: Yes (Life-Threatening, Hospitalization)
  Sender: FDA-Public Use
  Company Number: B0552470A

PATIENT
  Age: 72 Year
  Sex: Male

DRUGS (1)
  1. ARTIST [Suspect]
     Indication: HYPERTENSION
     Dosage: 20MG PER DAY
     Route: 048
     Dates: start: 20080912

REACTIONS (10)
  - ANOREXIA [None]
  - BLOOD PRESSURE DECREASED [None]
  - BRADYCARDIA [None]
  - DEPRESSED LEVEL OF CONSCIOUSNESS [None]
  - DIARRHOEA [None]
  - DYSSTASIA [None]
  - HEART RATE DECREASED [None]
  - HYPERKALAEMIA [None]
  - MALAISE [None]
  - NASOPHARYNGITIS [None]
